FAERS Safety Report 15718602 (Version 1)
Quarter: 2018Q4

REPORT INFORMATION
  Report Type: Spontaneous
  Country: US (occurrence: US)
  Receive Date: 20181129
  Receipt Date: 20181129
  Transmission Date: 20190205
  Serious: Yes (Hospitalization)
  Sender: FDA-Public Use
  Company Number: None

PATIENT
  Age: 76 Year
  Sex: Female
  Weight: 65.5 kg

DRUGS (7)
  1. AURANOFIN 6 MG [Suspect]
     Active Substance: AURANOFIN
     Indication: OVARIAN CANCER
     Route: 048
     Dates: start: 20181025, end: 20181115
  2. SIROLIMUS 5 MG [Suspect]
     Active Substance: SIROLIMUS
     Indication: OVARIAN CANCER
     Route: 048
     Dates: start: 20181025, end: 20181115
  3. LEVOTHYROXINE. [Suspect]
     Active Substance: LEVOTHYROXINE
  4. DEMADEX [Suspect]
     Active Substance: TORSEMIDE
  5. TOPROL XL [Suspect]
     Active Substance: METOPROLOL SUCCINATE
  6. AMLODIPINE [Suspect]
     Active Substance: AMLODIPINE BESYLATE
  7. ALDACTONE [Suspect]
     Active Substance: SPIRONOLACTONE

REACTIONS (3)
  - Hypokalaemia [None]
  - Diverticulitis [None]
  - Blood triglycerides increased [None]

NARRATIVE: CASE EVENT DATE: 20181126
